FAERS Safety Report 21497055 (Version 1)
Quarter: 2022Q4

REPORT INFORMATION
  Report Type: Spontaneous
  Country: US (occurrence: US)
  Receive Date: 20221023
  Receipt Date: 20221023
  Transmission Date: 20230113
  Serious: Yes (Other)
  Sender: FDA-Public Use
  Company Number: US-JNJFOC-20221039337

PATIENT
  Sex: Male

DRUGS (1)
  1. ERLEADA [Suspect]
     Active Substance: APALUTAMIDE
     Indication: Hormone-refractory prostate cancer
     Route: 048
     Dates: start: 20220919, end: 20221018

REACTIONS (2)
  - Decreased appetite [Not Recovered/Not Resolved]
  - Vomiting [Not Recovered/Not Resolved]

NARRATIVE: CASE EVENT DATE: 20221018
